FAERS Safety Report 5008628-5 (Version None)
Quarter: 2006Q2

REPORT INFORMATION
  Report Type: 
  Country: None (occurrence: None)
  Receive Date: 20060523
  Receipt Date: 20060516
  Transmission Date: 20061013
  Serious: Yes (Death, Other)
  Sender: FDA-Public Use
  Company Number: US-AVENTIS-200614473US

PATIENT

DRUGS (1)
  1. LOVENOX [Suspect]
     Indication: CAROTID ENDARTERECTOMY
     Dosage: DOSE: UNK
     Route: 042

REACTIONS (2)
  - CEREBROVASCULAR ACCIDENT [None]
  - THROMBOSIS [None]
